FAERS Safety Report 4912451-7 (Version None)
Quarter: 2006Q1

REPORT INFORMATION
  Report Type: 
  Country: None (occurrence: None)
  Receive Date: 20060215
  Receipt Date: 20050330
  Transmission Date: 20060701
  Serious: No
  Sender: FDA-Public Use
  Company Number: US-GLAXOSMITHKLINE-A0552004A

PATIENT
  Age: 39 Year
  Sex: Female

DRUGS (1)
  1. VALTREX [Suspect]
     Dosage: 1G PER DAY
     Route: 048
     Dates: start: 20050329

REACTIONS (3)
  - FATIGUE [None]
  - HEADACHE [None]
  - NECK PAIN [None]
